FAERS Safety Report 17581222 (Version 6)
Quarter: 2021Q3

REPORT INFORMATION
  Report Type: Report from Study
  Country: PL (occurrence: PL)
  Receive Date: 20200325
  Receipt Date: 20210723
  Transmission Date: 20211014
  Serious: Yes (Hospitalization)
  Sender: FDA-Public Use
  Company Number: PL-AMGEN-POLCT2019178693

PATIENT
  Age: 74 Year
  Sex: Male
  Weight: 90 kg

DRUGS (30)
  1. POLPRIL [Concomitant]
     Active Substance: RAMIPRIL
     Dosage: 2.5 MILLIGRAM
     Dates: start: 2008
  2. OMEPRAZOL [OMEPRAZOLE] [Concomitant]
     Active Substance: OMEPRAZOLE
     Dosage: 20 MILLIGRAM
     Dates: start: 20180222
  3. LANTUS [Concomitant]
     Active Substance: INSULIN GLARGINE
     Dosage: 14 UNK
     Dates: start: 1999, end: 20200706
  4. PARACETAMOL [Concomitant]
     Active Substance: ACETAMINOPHEN
     Dosage: 1000 MILLIGRAM (1 GRAM)
     Route: 042
     Dates: start: 20180222
  5. MONTELUKAST [Concomitant]
     Active Substance: MONTELUKAST SODIUM
     Dosage: 10 MILLIGRAM
     Route: 048
     Dates: start: 20180222
  6. METYPRED [METHYLPREDNISOLONE] [Concomitant]
     Active Substance: METHYLPREDNISOLONE
     Dosage: 20 MILLIGRAM
     Route: 048
     Dates: start: 20180224
  7. HEVIRAN [ACICLOVIR] [Concomitant]
     Active Substance: ACYCLOVIR
     Dosage: 800 MILLIGRAM
     Route: 048
     Dates: start: 20180222
  8. DEXAMETHASONE. [Suspect]
     Active Substance: DEXAMETHASONE
     Indication: PLASMA CELL MYELOMA
     Dosage: 20 MILLIGRAM
     Route: 048
     Dates: start: 20180410
  9. HYDROCHLOROTHIAZIDE. [Concomitant]
     Active Substance: HYDROCHLOROTHIAZIDE
     Dosage: 12.5 MILLIGRAM
     Dates: start: 2008
  10. AUGMENTIN [Concomitant]
     Active Substance: AMOXICILLIN\CLAVULANATE POTASSIUM
     Dosage: 1000 GRAM
     Dates: start: 20190925, end: 20191001
  11. MAGNESIUM LACTATE [Concomitant]
     Active Substance: MAGNESIUM LACTATE
     Dosage: UNK
     Dates: start: 20181106
  12. CALCIUM [Concomitant]
     Active Substance: CALCIUM
     Dosage: 1 UNK
     Dates: start: 20181107
  13. MESOPRAL [Concomitant]
     Dosage: 1 UNK
     Dates: start: 20180820
  14. APIDRA [Concomitant]
     Active Substance: INSULIN GLULISINE
     Dosage: UNK
     Dates: start: 1999, end: 20210706
  15. MILURIT [Concomitant]
     Active Substance: ALLOPURINOL
     Dosage: 100 MILLIGRAM
     Route: 048
     Dates: start: 20180222
  16. CARFILZOMIB [Suspect]
     Active Substance: CARFILZOMIB
     Dosage: UNK UNK, PER CHEMO REGIM
     Route: 042
     Dates: start: 20191105
  17. AREPLEX [Concomitant]
     Active Substance: CLOPIDOGREL BISULFATE
     Dosage: 75 MILLIGRAM
     Dates: start: 20180820
  18. EFFOX [Concomitant]
     Active Substance: ISOSORBIDE MONONITRATE
     Dosage: 50 MILLIGRAM
     Dates: start: 20180820
  19. OSPORIL [Concomitant]
     Active Substance: ZOLEDRONIC ACID
     Dosage: 4 MILLIGRAM
     Route: 042
     Dates: start: 20180222
  20. AMLOZEK [Concomitant]
     Active Substance: AMLODIPINE BESYLATE
     Dosage: 10 MILLIGRAM
     Dates: start: 2008
  21. CARFILZOMIB [Suspect]
     Active Substance: CARFILZOMIB
     Indication: PLASMA CELL MYELOMA
     Dosage: 94 MILLIGRAM, PER CHEMO REGIM
     Route: 042
     Dates: start: 20180222
  22. DARATUMUMAB [Suspect]
     Active Substance: DARATUMUMAB
     Indication: PLASMA CELL MYELOMA
     Dosage: 1440 MILLIGRAM, PER CHEMO REGIM
     Route: 042
     Dates: start: 20180222
  23. PREDUCTAL [Concomitant]
     Active Substance: TRIMETAZIDINE DIHYDROCHLORIDE
     Dosage: 1 UNK
     Dates: start: 20180820
  24. NITROMINT [Concomitant]
     Active Substance: NITROGLYCERIN
     Dosage: 1 UNK
     Dates: start: 20180820
  25. ACARD [ACETYLSALICYLIC ACID] [Concomitant]
     Active Substance: ASPIRIN
     Dosage: 75?150 MILLIGRAM
     Route: 048
     Dates: start: 20180222
  26. CLEMASTIN [Concomitant]
     Active Substance: CLEMASTINE
     Dosage: 1 UNK AND 2 MILLIGRAM
     Route: 042
     Dates: start: 20180222
  27. CLEMASTINE [Concomitant]
     Active Substance: CLEMASTINE
     Dosage: 2 MILLIGRAM
     Route: 042
     Dates: start: 20180529
  28. ATORIS [Concomitant]
     Active Substance: ATORVASTATIN CALCIUM
     Dosage: 20 MILLIGRAM
     Dates: start: 20180821
  29. CORONAL [BISOPROLOL FUMARATE] [Concomitant]
     Active Substance: BISOPROLOL FUMARATE
     Dosage: 5 MILLIGRAM
     Dates: start: 2008
  30. INSULIN [Concomitant]
     Active Substance: INSULIN NOS
     Indication: TYPE 2 DIABETES MELLITUS
     Dosage: UNK

REACTIONS (1)
  - Loss of consciousness [Recovered/Resolved]

NARRATIVE: CASE EVENT DATE: 20191012
